FAERS Safety Report 12132267 (Version 2)
Quarter: 2016Q3

REPORT INFORMATION
  Report Type: Spontaneous
  Country: US (occurrence: US)
  Receive Date: 20160301
  Receipt Date: 20160907
  Transmission Date: 20161109
  Serious: Yes (Hospitalization)
  Sender: FDA-Public Use
  Company Number: US-JNJFOC-20160208030

PATIENT
  Age: 42 Year
  Sex: Female

DRUGS (15)
  1. LEVAQUIN [Suspect]
     Active Substance: LEVOFLOXACIN
     Indication: TOOTH ABSCESS
     Route: 048
     Dates: start: 20080109, end: 20080122
  2. LEVAQUIN [Suspect]
     Active Substance: LEVOFLOXACIN
     Indication: TOOTH ABSCESS
     Route: 048
     Dates: start: 20110317, end: 20110323
  3. LEVAQUIN [Suspect]
     Active Substance: LEVOFLOXACIN
     Indication: TOOTH ABSCESS
     Route: 048
     Dates: start: 20040104, end: 20040113
  4. LEVAQUIN [Suspect]
     Active Substance: LEVOFLOXACIN
     Indication: TOOTH ABSCESS
     Route: 048
     Dates: start: 20110503, end: 20110512
  5. LEVAQUIN [Suspect]
     Active Substance: LEVOFLOXACIN
     Indication: TOOTH ABSCESS
     Route: 048
     Dates: start: 20090222, end: 20090228
  6. LEVAQUIN [Suspect]
     Active Substance: LEVOFLOXACIN
     Indication: TOOTH ABSCESS
     Route: 048
     Dates: start: 20091209, end: 20091215
  7. LEVAQUIN [Suspect]
     Active Substance: LEVOFLOXACIN
     Indication: TOOTH ABSCESS
     Route: 048
     Dates: start: 20070304, end: 20070313
  8. LEVAQUIN [Suspect]
     Active Substance: LEVOFLOXACIN
     Indication: TOOTH ABSCESS
     Route: 048
     Dates: start: 20061024, end: 20061103
  9. LEVAQUIN [Suspect]
     Active Substance: LEVOFLOXACIN
     Indication: TOOTH ABSCESS
     Route: 048
     Dates: start: 20061230, end: 20070108
  10. LEVAQUIN [Suspect]
     Active Substance: LEVOFLOXACIN
     Indication: TOOTH ABSCESS
     Route: 048
     Dates: start: 20071218, end: 20071224
  11. LEVAQUIN [Suspect]
     Active Substance: LEVOFLOXACIN
     Indication: TOOTH ABSCESS
     Route: 048
     Dates: start: 20090820, end: 20090829
  12. LEVAQUIN [Suspect]
     Active Substance: LEVOFLOXACIN
     Indication: TOOTH ABSCESS
     Route: 048
     Dates: start: 20101019, end: 20101025
  13. LEVAQUIN [Suspect]
     Active Substance: LEVOFLOXACIN
     Indication: TOOTH ABSCESS
     Route: 048
     Dates: start: 20040917, end: 20040930
  14. LEVAQUIN [Suspect]
     Active Substance: LEVOFLOXACIN
     Indication: TOOTH ABSCESS
     Route: 048
     Dates: start: 20070828, end: 20070910
  15. LEVAQUIN [Suspect]
     Active Substance: LEVOFLOXACIN
     Indication: TOOTH ABSCESS
     Route: 048
     Dates: start: 20101201, end: 20101214

REACTIONS (1)
  - Neuropathy peripheral [Not Recovered/Not Resolved]

NARRATIVE: CASE EVENT DATE: 20040917
